FAERS Safety Report 16857384 (Version 1)
Quarter: 2019Q3

REPORT INFORMATION
  Report Type: Spontaneous
  Country: CO (occurrence: CO)
  Receive Date: 20190926
  Receipt Date: 20190926
  Transmission Date: 20191005
  Serious: Yes (Death, Other)
  Sender: FDA-Public Use
  Company Number: CO-009507513-1909COL011124

PATIENT
  Sex: Female

DRUGS (1)
  1. PEMBROLIZUMAB. [Suspect]
     Active Substance: PEMBROLIZUMAB
     Dosage: DOSE REPORTED AS 0; FREQUENCY: UNKNOWN; ROUTE OF ADMINISTRATION: REPORTED AS SI

REACTIONS (1)
  - Discomfort [Fatal]
